FAERS Safety Report 7669287-6 (Version None)
Quarter: 2011Q3

REPORT INFORMATION
  Report Type: 
  Country: None (occurrence: None)
  Receive Date: 20110808
  Receipt Date: 20110731
  Transmission Date: 20111222
  Serious: Yes (Hospitalization)
  Sender: FDA-Public Use
  Company Number: PHHY2011IL69011

PATIENT
  Sex: Male

DRUGS (2)
  1. SANDOSTATIN LAR [Suspect]
     Dosage: 30 MG EVERY 28 DAYS
     Dates: start: 20110628
  2. SANDOSTATIN LAR [Suspect]
     Indication: CARCINOID SYNDROME
     Dosage: 30 MG, EVERY 28 DAYS
     Dates: start: 20091122

REACTIONS (1)
  - NEPHROLITHIASIS [None]
